FAERS Safety Report 6878094-3 (Version None)
Quarter: 2010Q2

REPORT INFORMATION
  Report Type: 
  Country: None (occurrence: None)
  Receive Date: 20100616
  Receipt Date: 20100226
  Transmission Date: 20101027
  Serious: No
  Sender: FDA-Public Use
  Company Number: DSA_42711_2010

PATIENT
  Sex: Male

DRUGS (4)
  1. XENAZINE [Suspect]
     Indication: DYSTONIA
     Dosage: (12,5 MG BID ORAL)
     Route: 048
     Dates: start: 20100212, end: 20100226
  2. PREVACID [Concomitant]
  3. ULTRACET [Concomitant]
  4. DIASTAT [Concomitant]

REACTIONS (1)
  - URTICARIA [None]
